FAERS Safety Report 18938399 (Version 1)
Quarter: 2021Q1

REPORT INFORMATION
  Report Type: Report from Study
  Country: US (occurrence: US)
  Receive Date: 20210224
  Receipt Date: 20210224
  Transmission Date: 20210420
  Serious: No
  Sender: FDA-Public Use
  Company Number: US-SUNOVION-2021SUN000469

PATIENT
  Age: 70 Year
  Sex: Female

DRUGS (3)
  1. KYNMOBI [Suspect]
     Active Substance: APOMORPHINE HYDROCHLORIDE
     Dosage: 10 MG, SINGLE
     Route: 060
     Dates: start: 20210210, end: 20210210
  2. KYNMOBI [Suspect]
     Active Substance: APOMORPHINE HYDROCHLORIDE
     Indication: PARKINSON^S DISEASE
     Dosage: 25 MG, SINGLE
     Route: 060
     Dates: start: 20210212, end: 20210212
  3. KYNMOBI [Suspect]
     Active Substance: APOMORPHINE HYDROCHLORIDE
     Dosage: 15 MG, SINGLE
     Route: 060
     Dates: start: 20210211, end: 20210211

REACTIONS (6)
  - Nervousness [Unknown]
  - Blood pressure increased [Unknown]
  - Headache [Unknown]
  - Vision blurred [Not Recovered/Not Resolved]
  - Feeling jittery [Unknown]
  - Somnolence [Not Recovered/Not Resolved]

NARRATIVE: CASE EVENT DATE: 20210211
